FAERS Safety Report 6665406-9 (Version None)
Quarter: 2010Q2

REPORT INFORMATION
  Report Type: 
  Country: None (occurrence: None)
  Receive Date: 20100402
  Receipt Date: 20100326
  Transmission Date: 20101027
  Serious: Yes (Other)
  Sender: FDA-Public Use
  Company Number: DE-PFIZER INC-2010012562

PATIENT
  Age: 72 Year
  Sex: Male

DRUGS (2)
  1. SILDENAFIL CITRATE [Suspect]
     Indication: PULMONARY ARTERIAL HYPERTENSION
     Dosage: 20 MG, 3X/DAY
     Route: 048
     Dates: start: 20080130, end: 20080313
  2. TAMSULOSIN [Concomitant]
     Dosage: 0.4 MG, UNK

REACTIONS (4)
  - CONJUNCTIVITIS [None]
  - DYSPNOEA [None]
  - HEADACHE [None]
  - PALPITATIONS [None]
